FAERS Safety Report 7413492-0 (Version None)
Quarter: 2011Q2

REPORT INFORMATION
  Report Type: 
  Country: None (occurrence: None)
  Receive Date: 20110413
  Receipt Date: 20110411
  Transmission Date: 20111010
  Serious: Yes (Death, Other)
  Sender: FDA-Public Use
  Company Number: PHHY2011US25469

PATIENT
  Sex: Female
  Weight: 60 kg

DRUGS (3)
  1. RECLAST [Suspect]
     Indication: OSTEOPOROSIS
     Dosage: 5 MG,
     Route: 042
     Dates: start: 20080101
  2. RECLAST [Suspect]
     Dosage: 5 MG
     Route: 042
     Dates: start: 20100413
  3. RECLAST [Suspect]
     Dosage: 5 MG,
     Route: 042
     Dates: start: 20090101

REACTIONS (5)
  - OSTEOARTHRITIS [None]
  - SEPSIS SYNDROME [None]
  - PANCREATITIS [None]
  - BLOOD PRESSURE DECREASED [None]
  - RESPIRATORY FAILURE [None]
